FAERS Safety Report 11126821 (Version 2)
Quarter: 2015Q2

REPORT INFORMATION
  Report Type: Spontaneous
  Country: US (occurrence: US)
  Receive Date: 20150520
  Receipt Date: 20150612
  Transmission Date: 20150821
  Serious: Yes (Hospitalization, Other)
  Sender: FDA-Public Use
  Company Number: US-009507513-1201USA00232

PATIENT
  Sex: Female

DRUGS (4)
  1. FOSAMAX [Suspect]
     Active Substance: ALENDRONATE SODIUM
     Indication: BONE DENSITY DECREASED
     Dosage: 10 MG, QD
     Route: 048
     Dates: start: 20010215, end: 20010904
  2. FOSAMAX PLUS D [Suspect]
     Active Substance: ALENDRONATE SODIUM\CHOLECALCIFEROL
     Indication: BONE DENSITY DECREASED
     Dosage: 70 MG/2800 IU QW
     Route: 048
     Dates: start: 20041227, end: 20071018
  3. FOSAMAX [Suspect]
     Active Substance: ALENDRONATE SODIUM
     Dosage: 70 MG, QW
     Route: 048
     Dates: start: 20020202, end: 20060531
  4. ALENDRONATE SODIUM. [Suspect]
     Active Substance: ALENDRONATE SODIUM

REACTIONS (9)
  - Intramedullary rod insertion [Unknown]
  - Foot fracture [Unknown]
  - Surgery [Unknown]
  - Osteoporosis [Unknown]
  - Bunion operation [Unknown]
  - Hypercholesterolaemia [Unknown]
  - Femur fracture [Unknown]
  - Bunion operation [Unknown]
  - Tenotomy [Unknown]

NARRATIVE: CASE EVENT DATE: 20030827
